FAERS Safety Report 5182902-4 (Version None)
Quarter: 2006Q4

REPORT INFORMATION
  Report Type: 
  Country: None (occurrence: None)
  Receive Date: 20061220
  Receipt Date: 20060221
  Transmission Date: 20070319
  Serious: Yes (Death, Hospitalization, Other)
  Sender: FDA-Public Use
  Company Number: JP-SANOFI-SYNTHELABO-F01200600497

PATIENT
  Sex: Male
  Weight: 53 kg

DRUGS (3)
  1. LEUCOVORIN CALCIUM [Suspect]
     Route: 042
     Dates: start: 20050714, end: 20050715
  2. FLUOROURACIL [Suspect]
     Dosage: 600MG/BODY=405.4MG/M IN BOLUS THEN 900MG/BODY=608.1MG/M2 AS CONTINUOUS INFUSION ON DAYS 1 AND 2
     Route: 042
     Dates: start: 20050714, end: 20050715
  3. OXALIPLATIN [Suspect]
     Indication: COLON CANCER
     Route: 042
     Dates: start: 20050714, end: 20050714

REACTIONS (8)
  - ANOREXIA [None]
  - CARDIO-RESPIRATORY ARREST [None]
  - DECREASED APPETITE [None]
  - DEHYDRATION [None]
  - DIARRHOEA [None]
  - DISEASE PROGRESSION [None]
  - HAEMOGLOBIN DECREASED [None]
  - POST PROCEDURAL HAEMORRHAGE [None]
